FAERS Safety Report 9052769 (Version 2)
Quarter: 2013Q1

REPORT INFORMATION
  Report Type: Report from Study
  Country: RO (occurrence: RO)
  Receive Date: 20130207
  Receipt Date: 20130213
  Transmission Date: 20140127
  Serious: Yes (Hospitalization)
  Sender: FDA-Public Use
  Company Number: RO-ROCHE-1188843

PATIENT
  Age: 54 None
  Sex: Female
  Weight: 65 kg

DRUGS (3)
  1. BEVACIZUMAB [Suspect]
     Indication: OVARIAN CANCER
     Dosage: DATE OF LAST DOSE PRIOR TO SAE:18 JAN 2013
     Route: 042
     Dates: start: 20111130
  2. PACLITAXEL [Suspect]
     Indication: OVARIAN CANCER
     Dosage: DATE OF LAST DOSE PRIOR TO EVENT: 26/MAR/2012
     Route: 042
     Dates: start: 20111130
  3. CARBOPLATIN [Suspect]
     Indication: OVARIAN CANCER
     Dosage: LAST DOSE PRIOR TO EVENT:26/MAR2012
     Route: 042
     Dates: start: 20111130

REACTIONS (1)
  - Intestinal obstruction [Recovered/Resolved]
